FAERS Safety Report 24352090 (Version 1)
Quarter: 2024Q3

REPORT INFORMATION
  Report Type: Report from Study
  Country: AT (occurrence: AT)
  Receive Date: 20240923
  Receipt Date: 20240923
  Transmission Date: 20241016
  Serious: No
  Sender: ROCHE
  Company Number: AT-ROCHE-3034058

PATIENT
  Age: 82 Year
  Sex: Female

DRUGS (33)
  1. TRASTUZUMAB [Suspect]
     Active Substance: TRASTUZUMAB
     Indication: HER2 positive breast cancer
     Route: 041
     Dates: start: 20181128, end: 20181128
  2. TRASTUZUMAB [Suspect]
     Active Substance: TRASTUZUMAB
     Route: 041
     Dates: start: 20181219
  3. DENOSUMAB [Suspect]
     Active Substance: DENOSUMAB
     Indication: HER2 positive breast cancer
     Dosage: MOST RECENT DOSE PRIOR TO THE EVENT: 6/NOV/2018
     Route: 058
     Dates: start: 20181106, end: 202101
  4. LETROZOLE [Suspect]
     Active Substance: LETROZOLE
     Indication: HER2 positive breast cancer
     Route: 048
     Dates: start: 20181121
  5. CANDESARTAN CILEXETIL AND HYDROCHLOROTHIAZIDE [Concomitant]
     Active Substance: CANDESARTAN CILEXETIL\HYDROCHLOROTHIAZIDE
     Dosage: ONGOING = CHECKED
     Route: 048
  6. CALMOLAN [Concomitant]
     Dosage: ONGOING = CHECKED
  7. RILMENIDINE [Concomitant]
     Active Substance: RILMENIDINE
     Dosage: ONGOING = NOT CHECKED
     Dates: end: 20201015
  8. RILMENIDINE [Concomitant]
     Active Substance: RILMENIDINE
     Dosage: ONGOING = NOT CHECKED
     Route: 048
     Dates: end: 20201005
  9. NEBIVOLOL HYDROCHLORIDE [Concomitant]
     Active Substance: NEBIVOLOL HYDROCHLORIDE
     Dosage: ONGOING = NOT CHECKED
     Route: 048
     Dates: end: 202010
  10. SIMVASTATIN [Concomitant]
     Active Substance: SIMVASTATIN
     Dosage: ONGOING = NOT CHECKED
     Dates: end: 20201015
  11. SIMVASTATIN [Concomitant]
     Active Substance: SIMVASTATIN
     Dosage: ONGOING = NOT CHECKED
     Route: 048
     Dates: end: 202010
  12. RANITIDINE HYDROCHLORIDE [Concomitant]
     Active Substance: RANITIDINE HYDROCHLORIDE
     Dosage: ONGOING = NOT CHECKED
     Dates: end: 20201015
  13. RANITIDINE HYDROCHLORIDE [Concomitant]
     Active Substance: RANITIDINE HYDROCHLORIDE
     Dosage: ONGOING = NOT CHECKED
     Route: 048
     Dates: end: 202010
  14. NOVALGIN (AUSTRIA) [Concomitant]
     Indication: Sciatica
     Dosage: ONGOING = NOT CHECKED
     Route: 048
     Dates: start: 20190501, end: 202010
  15. PRAMIPEXOLE [Concomitant]
     Active Substance: PRAMIPEXOLE\PRAMIPEXOLE DIHYDROCHLORIDE
     Dosage: ONGOING = NOT CHECKED
     Route: 048
     Dates: start: 20190501, end: 202010
  16. PRAMIPEXOLE [Concomitant]
     Active Substance: PRAMIPEXOLE\PRAMIPEXOLE DIHYDROCHLORIDE
     Dosage: ONGOING = NOT CHECKED
     Route: 048
     Dates: start: 20190501, end: 202010
  17. DRONABINOL [Concomitant]
     Active Substance: DRONABINOL
     Dosage: ONGOING = NOT CHECKED
     Route: 048
     Dates: start: 20190607, end: 202010
  18. CALMOLAN [Concomitant]
     Route: 048
  19. PANTOPRAZOLE SODIUM [Concomitant]
     Active Substance: PANTOPRAZOLE SODIUM
     Indication: Prophylaxis
     Route: 048
     Dates: end: 20180501
  20. DIMETHINDENE [Concomitant]
     Active Substance: DIMETHINDENE
     Indication: Prophylaxis
     Dosage: 1 OTHER
     Route: 042
     Dates: start: 20181219, end: 20181219
  21. DIMETHINDENE [Concomitant]
     Active Substance: DIMETHINDENE
     Dosage: 1 OTHER
     Route: 042
     Dates: start: 20190109, end: 20190109
  22. ACETAMINOPHEN [Concomitant]
     Active Substance: ACETAMINOPHEN
     Indication: Prophylaxis
     Route: 042
     Dates: start: 20181219, end: 20181219
  23. ASCORBIC ACID\CALCIUM PHOSPHATE\CHOLECALCIFEROL\CITRIC ACID MONOHYDRAT [Concomitant]
     Active Substance: ASCORBIC ACID\CALCIUM PHOSPHATE\CHOLECALCIFEROL\CITRIC ACID MONOHYDRATE
     Indication: Prophylaxis
     Route: 048
     Dates: end: 202010
  24. TRAMADOL [Concomitant]
     Active Substance: TRAMADOL\TRAMADOL HYDROCHLORIDE
     Route: 048
     Dates: start: 202010
  25. CANDESARTAN [Concomitant]
     Active Substance: CANDESARTAN
     Route: 048
  26. PREGABALIN ACC [Concomitant]
     Route: 048
     Dates: start: 202010
  27. MIRTAZAPINE [Concomitant]
     Active Substance: MIRTAZAPINE
     Route: 048
     Dates: start: 202010
  28. AUGMENTIN [Concomitant]
     Active Substance: AMOXICILLIN\CLAVULANATE POTASSIUM
     Route: 048
     Dates: start: 202108, end: 202108
  29. DEXIBUPROFEN [Concomitant]
     Active Substance: DEXIBUPROFEN
     Route: 048
     Dates: start: 202108, end: 20210831
  30. XGEVA [Concomitant]
     Active Substance: DENOSUMAB
     Indication: Metastases to bone
     Route: 048
     Dates: start: 20181106, end: 202101
  31. XGEVA [Concomitant]
     Active Substance: DENOSUMAB
     Route: 058
     Dates: start: 202306
  32. TRAMADOL HYDROCHLORIDE [Concomitant]
     Active Substance: TRAMADOL HYDROCHLORIDE
  33. GABAPENTIN [Concomitant]
     Active Substance: GABAPENTIN
     Indication: Neuralgia
     Route: 048
     Dates: start: 202208, end: 202208

REACTIONS (1)
  - Nasopharyngitis [Recovered/Resolved]

NARRATIVE: CASE EVENT DATE: 20200601
